FAERS Safety Report 15820400 (Version 1)
Quarter: 2019Q1

REPORT INFORMATION
  Report Type: Spontaneous
  Country: US (occurrence: US)
  Receive Date: 20190111
  Receipt Date: 20190111
  Transmission Date: 20190417
  Serious: Yes (Life-Threatening, Hospitalization, Disabling, Other)
  Sender: FDA-Public Use
  Company Number: None

PATIENT
  Age: 28 Year
  Sex: Female

DRUGS (2)
  1. TMI [Concomitant]
  2. KLONOPIN [Suspect]
     Active Substance: CLONAZEPAM
     Dates: start: 20060101, end: 20110101

REACTIONS (5)
  - Anger [None]
  - Depression [None]
  - Impaired quality of life [None]
  - Post-traumatic stress disorder [None]
  - Stress [None]

NARRATIVE: CASE EVENT DATE: 20110301
